FAERS Safety Report 6783561-7 (Version None)
Quarter: 2010Q2

REPORT INFORMATION
  Report Type: 
  Country: None (occurrence: None)
  Receive Date: 20100622
  Receipt Date: 20100609
  Transmission Date: 20101027
  Serious: Yes (Other)
  Sender: FDA-Public Use
  Company Number: PHHY2010CA37942

PATIENT
  Sex: Female

DRUGS (8)
  1. ACLASTA/ZOLEDRONATE T29581+A+ [Suspect]
     Indication: OSTEOPOROSIS
     Dosage: 5 MG YEARLY
     Route: 042
     Dates: start: 20090210
  2. VENTOLIN [Concomitant]
     Dosage: UNK
  3. FLOVENT [Concomitant]
     Dosage: UNK
  4. CALCIUM CARBONATE [Concomitant]
     Dosage: 1500 MG PER DAY
     Route: 048
  5. VITAMIN D [Concomitant]
     Dosage: 100 IU PER DAY
     Route: 048
  6. IRON [Concomitant]
     Dosage: 3 DRUGS PER DAY
     Route: 048
  7. OIL OF AREGANO [Concomitant]
     Dosage: UNK
  8. VITAMIN C [Concomitant]
     Dosage: UNK
     Route: 048

REACTIONS (3)
  - ABDOMINAL PAIN UPPER [None]
  - APHAGIA [None]
  - CHEST PAIN [None]
